FAERS Safety Report 14633256 (Version 3)
Quarter: 2018Q2

REPORT INFORMATION
  Report Type: Report from Study
  Country: US (occurrence: US)
  Receive Date: 20180313
  Receipt Date: 20180514
  Transmission Date: 20180711
  Serious: Yes (Other)
  Sender: FDA-Public Use
  Company Number: US-BRISTOL-MYERS SQUIBB COMPANY-BMS-2017-095962

PATIENT
  Sex: Male

DRUGS (1)
  1. NIVOLUMAB [Suspect]
     Active Substance: NIVOLUMAB
     Indication: RENAL CELL CARCINOMA
     Route: 042

REACTIONS (12)
  - Dry skin [Unknown]
  - Cough [Unknown]
  - Abdominal pain upper [Recovered/Resolved]
  - Contusion [Unknown]
  - Pruritus [Not Recovered/Not Resolved]
  - Asthenia [Unknown]
  - Constipation [Not Recovered/Not Resolved]
  - Musculoskeletal pain [Unknown]
  - Malignant neoplasm progression [Unknown]
  - Arthralgia [Unknown]
  - Visual impairment [Unknown]
  - Headache [Unknown]
